FAERS Safety Report 8557103-X (Version None)
Quarter: 2012Q3

REPORT INFORMATION
  Report Type: 
  Country: None (occurrence: None)
  Receive Date: 20120720
  Receipt Date: 20120705
  Transmission Date: 20120928
  Serious: Yes (Hospitalization, Other)
  Sender: FDA-Public Use
  Company Number: 2012P1048824

PATIENT
  Age: 91 Year
  Sex: Female

DRUGS (9)
  1. CARVEDILOL [Concomitant]
  2. ENALAPRIL MALEATE [Concomitant]
  3. NITROGLYCERIN [Concomitant]
  4. GLICLAZIDE [Concomitant]
  5. TICLOPIDINE HCL [Concomitant]
  6. ATENOLOL [Concomitant]
  7. FUROSEMIDE [Concomitant]
  8. METFORMIN HYDROCHLORIDE [Concomitant]
  9. DIGOXIN [Suspect]
     Dosage: PO
     Route: 048
     Dates: start: 20120101, end: 20120510

REACTIONS (2)
  - BRADYCARDIA [None]
  - VERTIGO [None]
